FAERS Safety Report 22305150 (Version 1)
Quarter: 2023Q2

REPORT INFORMATION
  Report Type: Report from Study
  Country: CA (occurrence: CA)
  Receive Date: 20230510
  Receipt Date: 20230510
  Transmission Date: 20230722
  Serious: Yes (Other)
  Sender: FDA-Public Use
  Company Number: CA-ABBVIE-4310790

PATIENT
  Age: 74 Year
  Sex: Male

DRUGS (1)
  1. SKYRIZI [Suspect]
     Active Substance: RISANKIZUMAB-RZAA
     Indication: Psoriasis
     Route: 058
     Dates: start: 20220425, end: 20230130

REACTIONS (5)
  - Transfusion [Unknown]
  - Memory impairment [Unknown]
  - Abdominal wound dehiscence [Unknown]
  - Implant site infection [Unknown]
  - Abdominal wall wound [Unknown]

NARRATIVE: CASE EVENT DATE: 20220701
